FAERS Safety Report 13152168 (Version 19)
Quarter: 2022Q2

REPORT INFORMATION
  Report Type: Spontaneous
  Country: GB (occurrence: GB)
  Receive Date: 20170125
  Receipt Date: 20220518
  Transmission Date: 20220720
  Serious: Yes (Other)
  Sender: FDA-Public Use
  Company Number: GB-MYLANLABS-2017M1003714

PATIENT
  Age: 61 Year
  Sex: Female
  Weight: 60.1 kg

DRUGS (24)
  1. CLOZARIL [Suspect]
     Active Substance: CLOZAPINE
     Indication: Schizophrenia
     Dosage: 400 MILLIGRAM, QD(200 MG, BID)
     Route: 048
  2. CLOZARIL [Suspect]
     Active Substance: CLOZAPINE
     Dosage: 400 MILLIGRAM, QD (PM)
     Route: 048
     Dates: start: 20030116
  3. CLOZARIL [Suspect]
     Active Substance: CLOZAPINE
     Dosage: 200 MILLIGRAM, BID
     Route: 048
  4. AMISULPRIDE [Suspect]
     Active Substance: AMISULPRIDE
     Indication: Product used for unknown indication
     Dosage: 400 MILLIGRAM, QD (200 MG, BID)
     Route: 048
  5. AMISULPRIDE [Suspect]
     Active Substance: AMISULPRIDE
     Dosage: 200 MILLIGRAM, QD (200 MG, BID)
     Route: 048
  6. AMISULPRIDE [Suspect]
     Active Substance: AMISULPRIDE
     Dosage: 200 MILLIGRAM, BID (400 MILLIGRAM DAILY))
     Route: 048
  7. AMISULPRIDE [Suspect]
     Active Substance: AMISULPRIDE
     Dosage: 800 MILLIGRAM, QD (200 MG, BID,UNIT DOSE : 800 MG )
     Route: 048
  8. CITALOPRAM [Suspect]
     Active Substance: CITALOPRAM HYDROBROMIDE
     Indication: Product used for unknown indication
     Dosage: 30 MILLIGRAM, QD (30 MILLIGRAM DAILY; 30 MG, QD
     Route: 048
  9. CITALOPRAM [Suspect]
     Active Substance: CITALOPRAM HYDROBROMIDE
     Dosage: 30 MILLIGRAM, QD (DAILY)
     Route: 048
  10. VALPROIC ACID [Suspect]
     Active Substance: VALPROIC ACID
     Indication: Product used for unknown indication
     Dosage: 1200 MILLIGRAM, QD (600 MG, BID)
     Route: 048
  11. VALPROIC ACID [Suspect]
     Active Substance: VALPROIC ACID
     Dosage: 600 MILLIGRAM, QD (600 MILLIGRAM DAILY; 600 MG, QD , THERAPY START DATE AND END DATE : ASKU )
     Route: 048
  12. VALPROIC ACID [Suspect]
     Active Substance: VALPROIC ACID
     Dosage: 600 MILLIGRAM, QD
     Route: 048
  13. VALPROIC ACID [Suspect]
     Active Substance: VALPROIC ACID
     Dosage: 1200 MILLIGRAM, QD(600 MG, BID )
     Route: 048
  14. PIRENZEPINE [Suspect]
     Active Substance: PIRENZEPINE
     Indication: Product used for unknown indication
     Dosage: 100 MILLIGRAM, QD (50 MG, BID)
     Route: 048
  15. PIRENZEPINE [Suspect]
     Active Substance: PIRENZEPINE
     Dosage: 600 MILLIGRAM, QD (600 MILLIGRAM DAILY; THERAPY START AND END DATE: ASKU)
     Route: 048
  16. PIRENZEPINE [Suspect]
     Active Substance: PIRENZEPINE
     Dosage: 100 MILLIGRAM DAILY; 50 MG, BID
     Route: 048
  17. PIRENZEPINE [Suspect]
     Active Substance: PIRENZEPINE
     Dosage: 50 MILLIGRAM, BID (100 MILLIGRAM DAILY; 50 MG, BID , THERAPY START DATE AND END DATE : ASKU)
     Route: 048
  18. PIRENZEPINE [Suspect]
     Active Substance: PIRENZEPINE
     Dosage: 600 MILLIGRAM, QD (600 MILLIGRAM DAILY; 600 MG, QD  )
     Route: 048
  19. PIRENZEPINE [Suspect]
     Active Substance: PIRENZEPINE
     Dosage: 600 MILLIGRAM, QD
  20. LORAZEPAM [Suspect]
     Active Substance: LORAZEPAM
     Indication: Product used for unknown indication
     Dosage: 1 MILLIGRAM, PRN, AS NECESSARY
     Route: 048
  21. LORAZEPAM [Suspect]
     Active Substance: LORAZEPAM
     Dosage: 50 MILLIGRAM, BID (100 MILLIGRAM DAILY)
     Route: 048
  22. LORAZEPAM [Suspect]
     Active Substance: LORAZEPAM
     Dosage: 1 MILLIGRAM (1 MG, PRN , THERAPY START DATE AND END DATE ASKU)
     Route: 048
  23. CLONAZEPAM [Suspect]
     Active Substance: CLONAZEPAM
     Indication: Schizophrenia
     Dosage: 200 MILLIGRAM, BID
     Route: 048
  24. CLONAZEPAM [Suspect]
     Active Substance: CLONAZEPAM
     Dosage: 400 MILLIGRAM, QD
     Route: 048
     Dates: start: 20030116

REACTIONS (3)
  - Differential white blood cell count abnormal [Recovering/Resolving]
  - Neutrophil count abnormal [Recovering/Resolving]
  - Off label use [Unknown]

NARRATIVE: CASE EVENT DATE: 20170118
